FAERS Safety Report 25045907 (Version 1)
Quarter: 2025Q1

REPORT INFORMATION
  Report Type: Spontaneous
  Country: US (occurrence: None)
  Receive Date: 20250305
  Receipt Date: 20250305
  Transmission Date: 20250409
  Serious: Yes (Other)
  Sender: FDA-CTU
  Company Number: None

PATIENT
  Age: 83 Year
  Sex: Female
  Weight: 58.51 kg

DRUGS (2)
  1. BREYANZI [Suspect]
     Active Substance: LISOCABTAGENE MARALEUCEL
     Indication: Diffuse large B-cell lymphoma
     Route: 042
     Dates: start: 20240109, end: 20240109
  2. BENDAMUSTINE [Concomitant]
     Active Substance: BENDAMUSTINE
     Dates: start: 20240103, end: 20240104

REACTIONS (1)
  - Chronic myelomonocytic leukaemia [None]

NARRATIVE: CASE EVENT DATE: 20240215
